FAERS Safety Report 9687270 (Version 1)
Quarter: 2013Q4

REPORT INFORMATION
  Report Type: Spontaneous
  Country: FR (occurrence: FR)
  Receive Date: 20131114
  Receipt Date: 20131114
  Transmission Date: 20140711
  Serious: Yes (Life-Threatening, Hospitalization)
  Sender: FDA-Public Use
  Company Number: FR-ROCHE-1299591

PATIENT
  Age: 47 Year
  Sex: Female
  Weight: 68 kg

DRUGS (14)
  1. CELLCEPT [Suspect]
     Indication: PROPHYLAXIS
     Route: 048
     Dates: start: 20130910, end: 20131014
  2. CELLCEPT [Suspect]
     Route: 048
  3. ROVALCYTE [Suspect]
     Indication: PRODUCT USED FOR UNKNOWN INDICATION
     Route: 048
     Dates: start: 20130624, end: 201310
  4. ADVAGRAF [Suspect]
     Indication: PROPHYLAXIS
     Route: 048
     Dates: start: 20131001
  5. ADVAGRAF [Suspect]
     Route: 048
     Dates: start: 20131018
  6. DOLIPRANE [Suspect]
     Indication: PRODUCT USED FOR UNKNOWN INDICATION
     Route: 048
     Dates: start: 20130805
  7. PENTACARINAT [Suspect]
     Indication: PRODUCT USED FOR UNKNOWN INDICATION
     Route: 055
     Dates: start: 20130627
  8. AVLOCARDYL [Suspect]
     Indication: PRODUCT USED FOR UNKNOWN INDICATION
     Route: 048
     Dates: start: 20130618
  9. EUPANTOL [Suspect]
     Indication: PRODUCT USED FOR UNKNOWN INDICATION
     Route: 048
     Dates: start: 20130624
  10. SMECTA (FRANCE) [Concomitant]
     Indication: DIARRHOEA
     Route: 048
     Dates: start: 20130910
  11. TARDYFERON (FRANCE) [Concomitant]
     Route: 048
     Dates: start: 20130708
  12. TARDYFERON (FRANCE) [Concomitant]
     Route: 048
  13. SPECIAFOLDINE [Concomitant]
     Route: 048
     Dates: start: 20130618
  14. SOLUPRED (FRANCE) [Concomitant]

REACTIONS (1)
  - Agranulocytosis [Recovered/Resolved]
